FAERS Safety Report 7322136-8 (Version None)
Quarter: 2011Q1

REPORT INFORMATION
  Report Type: 
  Country: None (occurrence: None)
  Receive Date: 20110228
  Receipt Date: 20110214
  Transmission Date: 20110831
  Serious: Yes (Hospitalization)
  Sender: FDA-Public Use
  Company Number: CA-CELGENEUS-028-C5013-10112629

PATIENT
  Sex: Male
  Weight: 91 kg

DRUGS (11)
  1. THALIDOMIDE [Suspect]
     Indication: MULTIPLE MYELOMA
     Route: 048
     Dates: start: 20100506
  2. THALIDOMIDE [Suspect]
     Route: 048
     Dates: start: 20101104
  3. PREDNISONE [Suspect]
     Route: 065
     Dates: start: 20110113
  4. MELPHALAN HYDROCHLORIDE [Suspect]
     Route: 065
     Dates: start: 20110113
  5. DALTEPARIN SODIUM [Concomitant]
     Indication: THROMBOSIS PROPHYLAXIS
     Route: 058
     Dates: start: 20101120, end: 20101231
  6. PREDNISONE [Suspect]
     Indication: MULTIPLE MYELOMA
     Route: 065
     Dates: start: 20100506
  7. MELPHALAN HYDROCHLORIDE [Suspect]
     Route: 065
     Dates: start: 20101104, end: 20101217
  8. FENTANYL [Concomitant]
     Route: 061
     Dates: start: 20101120, end: 20101204
  9. PREDNISONE [Suspect]
     Route: 065
     Dates: start: 20101104, end: 20101217
  10. MELPHALAN HYDROCHLORIDE [Suspect]
     Indication: MULTIPLE MYELOMA
     Route: 065
     Dates: start: 20100506
  11. FENTANYL [Concomitant]
     Route: 061
     Dates: start: 20101204

REACTIONS (2)
  - ABDOMINAL ABSCESS [None]
  - SEPSIS [None]
